FAERS Safety Report 10154983 (Version 1)
Quarter: 2014Q2

REPORT INFORMATION
  Report Type: Spontaneous
  Country: FR (occurrence: FR)
  Receive Date: 20140506
  Receipt Date: 20140506
  Transmission Date: 20141212
  Serious: Yes (Hospitalization)
  Sender: FDA-Public Use
  Company Number: FR-TEVA-479151ISR

PATIENT
  Age: 87 Year
  Sex: Male

DRUGS (1)
  1. AZILECT [Suspect]
     Dosage: 1 MILLIGRAM DAILY;
     Route: 048
     Dates: start: 201402, end: 20140409

REACTIONS (5)
  - Fall [Recovered/Resolved]
  - Orthostatic hypotension [Recovered/Resolved]
  - Malaise [Recovered/Resolved]
  - Loss of consciousness [Recovered/Resolved]
  - Head injury [Recovered/Resolved]
